FAERS Safety Report 8151466-5 (Version None)
Quarter: 2012Q1

REPORT INFORMATION
  Report Type: 
  Country: None (occurrence: None)
  Receive Date: 20120220
  Receipt Date: 20120209
  Transmission Date: 20120608
  Serious: Yes (Hospitalization)
  Sender: FDA-Public Use
  Company Number: DE-ROCHE-1039291

PATIENT
  Sex: Male
  Weight: 78.5 kg

DRUGS (1)
  1. AVASTIN [Suspect]
     Indication: RENAL CELL CARCINOMA
     Dosage: LAST DOSE PRIOR TO SAE: 27/OCT/2011
     Route: 042

REACTIONS (4)
  - NECK PAIN [None]
  - VISUAL FIELD DEFECT [None]
  - DIZZINESS [None]
  - HEADACHE [None]
